FAERS Safety Report 7639837-4 (Version None)
Quarter: 2011Q3

REPORT INFORMATION
  Report Type: 
  Country: None (occurrence: None)
  Receive Date: 20110727
  Receipt Date: 20110722
  Transmission Date: 20111222
  Serious: Yes (Other)
  Sender: FDA-Public Use
  Company Number: US-AMGEN-USASP2011037544

PATIENT
  Sex: Male

DRUGS (1)
  1. NPLATE [Suspect]
     Dosage: UNK
     Dates: start: 20090910

REACTIONS (3)
  - URINARY TRACT INFECTION [None]
  - DYSPNOEA [None]
  - BIOPSY BONE MARROW ABNORMAL [None]
